FAERS Safety Report 5566588-2 (Version None)
Quarter: 2007Q4

REPORT INFORMATION
  Report Type: 
  Country: None (occurrence: None)
  Receive Date: 20071219
  Receipt Date: 20071214
  Transmission Date: 20080405
  Serious: Yes (Other)
  Sender: FDA-Public Use
  Company Number: US-JNJFOC-20071204530

PATIENT
  Age: 76 Year
  Sex: Male
  Weight: 72.58 kg

DRUGS (2)
  1. TOPAMAX [Suspect]
     Indication: ESSENTIAL TREMOR
  2. PROPRANOLOL [Concomitant]
     Indication: ESSENTIAL TREMOR
     Route: 048

REACTIONS (1)
  - INTESTINAL HAEMORRHAGE [None]
